FAERS Safety Report 10363587 (Version 1)
Quarter: 2014Q3

REPORT INFORMATION
  Report Type: Spontaneous
  Country: US (occurrence: US)
  Receive Date: 20140805
  Receipt Date: 20140805
  Transmission Date: 20150326
  Serious: Yes (Other)
  Sender: FDA-Public Use
  Company Number: US-PFIZER INC-2014216379

PATIENT
  Age: 37 Year
  Sex: Female
  Weight: 79.82 kg

DRUGS (4)
  1. INSULIN [Concomitant]
     Active Substance: INSULIN NOS
     Indication: DIABETES MELLITUS
     Dosage: 40 IU, DAILY
  2. DILANTIN-125 [Suspect]
     Active Substance: PHENYTOIN
     Indication: CONVULSION PROPHYLAXIS
     Dosage: 100 MG, 4X/DAY
     Dates: start: 1967
  3. DILANTIN-125 [Suspect]
     Active Substance: PHENYTOIN
     Dosage: 100 MG, UNK
  4. DILANTIN-125 [Suspect]
     Active Substance: PHENYTOIN
     Dosage: 100 MG, 3X/DAY

REACTIONS (2)
  - Drug ineffective [Recovered/Resolved]
  - Nervous system disorder [Unknown]

NARRATIVE: CASE EVENT DATE: 1977
